FAERS Safety Report 7698959-2 (Version None)
Quarter: 2011Q3

REPORT INFORMATION
  Report Type: 
  Country: None (occurrence: None)
  Receive Date: 20110819
  Receipt Date: 20110805
  Transmission Date: 20111222
  Serious: Yes (Other)
  Sender: FDA-Public Use
  Company Number: JP-BAYER-2011-057117

PATIENT
  Age: 84 Year
  Sex: Female

DRUGS (7)
  1. OMEPRAZOLE [Concomitant]
     Dosage: DAILY DOSE 10 MG
     Route: 048
  2. LIVALO [Concomitant]
     Indication: HYPERLIPIDAEMIA
     Dosage: DAILY DOSE 1 MG
     Route: 048
  3. ASPIRIN [Suspect]
     Indication: PROPHYLAXIS
     Dosage: DAILY DOSE 100 MG
     Route: 048
  4. SELBEX [Concomitant]
     Indication: PAIN MANAGEMENT
     Dosage: DAILY DOSE 100 MG
     Route: 048
  5. SOLETON [Concomitant]
     Indication: PAIN MANAGEMENT
     Dosage: DAILY DOSE 160 MG
     Route: 048
  6. AMLODIPINE [Concomitant]
     Indication: BLOOD PRESSURE MANAGEMENT
     Dosage: DAILY DOSE 5 MG
     Route: 048
  7. ISOSORBIDE DINITRATE [Concomitant]
     Indication: ANGINA PECTORIS
     Dosage: DAILY DOSE 40 MG
     Route: 048

REACTIONS (1)
  - HAEMORRHAGE SUBCUTANEOUS [None]
